FAERS Safety Report 7909115-4 (Version None)
Quarter: 2011Q4

REPORT INFORMATION
  Report Type: 
  Country: None (occurrence: None)
  Receive Date: 20111111
  Receipt Date: 20111028
  Transmission Date: 20120403
  Serious: Yes (Life-Threatening, Hospitalization)
  Sender: FDA-Public Use
  Company Number: SK-PFIZER INC-2011274026

PATIENT
  Age: 79 Year
  Sex: Female

DRUGS (11)
  1. ZOLPIDEM TARTRATE [Concomitant]
  2. ATROVENT [Concomitant]
  3. RAMIPRIL [Suspect]
     Dosage: 2.5 MG, 1X/DAY
     Route: 048
     Dates: start: 20110801, end: 20110916
  4. EUPHYLLIN CR N [Concomitant]
  5. WARFARIN [Concomitant]
  6. SPIRONOLACTONE [Concomitant]
  7. FUROSEMIDE [Concomitant]
  8. RAMIPRIL [Suspect]
     Indication: HYPERTENSION
     Dosage: 2.5 MG, 1X/DAY
     Route: 048
     Dates: start: 20110601
  9. LUSOPRESS [Concomitant]
  10. ALLOPURINOL [Concomitant]
  11. TIAPRIDAL [Concomitant]

REACTIONS (4)
  - URINARY TRACT INFECTION [None]
  - RENAL FAILURE CHRONIC [None]
  - TACHYCARDIA [None]
  - HYPOTENSION [None]
